FAERS Safety Report 7419887-3 (Version None)
Quarter: 2011Q2

REPORT INFORMATION
  Report Type: 
  Country: None (occurrence: None)
  Receive Date: 20110418
  Receipt Date: 20081107
  Transmission Date: 20111010
  Serious: Yes (Death, Hospitalization, Other)
  Sender: FDA-Public Use
  Company Number: US-BAYER-200838473NA

PATIENT
  Age: 81 Year
  Sex: Female
  Weight: 78.458 kg

DRUGS (16)
  1. MILRINONE [Concomitant]
     Dosage: ILLEGIBLE
     Route: 042
     Dates: start: 20051104, end: 20051104
  2. TRASYLOL [Suspect]
     Indication: MITRAL VALVE REPAIR
  3. SPIRONOLACTONE [Concomitant]
     Dosage: 25 MG DAILY
     Route: 048
  4. NITROGLYCERIN [Concomitant]
     Dosage: TITRATED
     Route: 042
     Dates: start: 20051104
  5. LASIX [Concomitant]
     Dosage: 40 MG EVERY 12 HRS
     Route: 048
  6. GENTAMICIN [Concomitant]
     Dosage: 80 MG
     Route: 042
     Dates: start: 20051104, end: 20051104
  7. TRASYLOL [Suspect]
     Indication: CORONARY ARTERY BYPASS
     Dosage: 200 ML BOLUS THEN 50 ML/ HOUR INFUSION
     Route: 042
     Dates: start: 20051104, end: 20051104
  8. HEPARIN [Concomitant]
     Dosage: 20,000 UNITS
     Route: 042
     Dates: start: 20051104, end: 20051104
  9. CARDIOPLEGIA [Concomitant]
     Dosage: 880 ML CARDIOPULMONARY BYPASS
     Route: 042
     Dates: start: 20051104, end: 20051104
  10. ATENOLOL [Concomitant]
     Dosage: 50 MG EVERY 12 HR
     Route: 048
  11. ZOLOFT [Concomitant]
     Dosage: 50 MG DAILY
     Route: 048
  12. LISINOPRIL [Concomitant]
     Dosage: 20 MG EVERY 12 HRS
     Route: 048
  13. TRASYLOL [Suspect]
     Indication: TRICUSPID VALVE REPAIR
  14. LANOXIN [Concomitant]
     Dosage: 0.125 MG DAILY
     Route: 048
  15. LEVAQUIN [Concomitant]
     Dosage: 500 MG
     Route: 048
     Dates: start: 20050929
  16. VANCOMYCIN [Concomitant]
     Dosage: 1 GM
     Route: 042
     Dates: start: 20051104, end: 20051104

REACTIONS (20)
  - INJURY [None]
  - DEPRESSION [None]
  - DEATH [None]
  - WHITE BLOOD CELL COUNT INCREASED [None]
  - SEPSIS [None]
  - LEFT VENTRICULAR FAILURE [None]
  - CONTINUOUS HAEMODIAFILTRATION [None]
  - FUNGAEMIA [None]
  - PAIN [None]
  - ANHEDONIA [None]
  - RESPIRATORY FAILURE [None]
  - CARDIAC ARREST [None]
  - FEAR [None]
  - HYPOTENSION [None]
  - AZOTAEMIA [None]
  - UNEVALUABLE EVENT [None]
  - ANXIETY [None]
  - PULMONARY HYPERTENSION [None]
  - RENAL FAILURE [None]
  - DECUBITUS ULCER [None]
